FAERS Safety Report 22585681 (Version 2)
Quarter: 2023Q4

REPORT INFORMATION
  Report Type: Report from Study
  Country: CA (occurrence: CA)
  Receive Date: 20230610
  Receipt Date: 20231115
  Transmission Date: 20240110
  Serious: Yes (Other)
  Sender: FDA-Public Use
  Company Number: CA-002147023-NVSC2023CA128569

PATIENT
  Sex: Female

DRUGS (4)
  1. AIMOVIG [Suspect]
     Active Substance: ERENUMAB-AOOE
     Indication: Migraine
     Dosage: UNK
     Route: 065
     Dates: start: 20230104, end: 20231108
  2. NAPROXEN [Suspect]
     Active Substance: NAPROXEN
     Indication: Migraine
     Dosage: UNK UNK, PRN
     Route: 065
     Dates: start: 20230104
  3. TYLENOL [Concomitant]
     Active Substance: ACETAMINOPHEN
     Indication: Sleep disorder
     Dosage: UNK, Q2W (TWICE A MONTH)
     Route: 065
  4. SYNTHROID [Concomitant]
     Active Substance: LEVOTHYROXINE SODIUM
     Indication: Product used for unknown indication
     Dosage: 88 UG, QD
     Route: 048

REACTIONS (12)
  - Dystonia [Unknown]
  - Constipation [Unknown]
  - Alopecia [Unknown]
  - Tinnitus [Not Recovered/Not Resolved]
  - Tenderness [Unknown]
  - Eye pain [Unknown]
  - Osmophobia [Unknown]
  - Photophobia [Unknown]
  - Nausea [Unknown]
  - Vomiting [Unknown]
  - Migraine [Recovering/Resolving]
  - Drug ineffective [Unknown]
